FAERS Safety Report 11183054 (Version 1)
Quarter: 2015Q2

REPORT INFORMATION
  Report Type: Report from Study
  Country: DE (occurrence: DE)
  Receive Date: 20150611
  Receipt Date: 20150611
  Transmission Date: 20150821
  Serious: Yes (Death)
  Sender: FDA-Public Use
  Company Number: DE-BAXTER-2015BAX031983

PATIENT

DRUGS (5)
  1. CYCLOPHOSPHAMID TROCKENSUBSTANZ 2 G BAXTER ONCOLOGY [Suspect]
     Active Substance: CYCLOPHOSPHAMIDE
     Indication: PROPHYLAXIS AGAINST GRAFT VERSUS HOST DISEASE
     Dosage: DAY 3 AND 4 (HIGH DOSE)
     Route: 042
  2. FLUDARABINE [Suspect]
     Active Substance: FLUDARABINE PHOSPHATE
     Indication: BONE MARROW CONDITIONING REGIMEN
     Dosage: 30 MG/M2 PER DAY ON 5 DAYS
     Route: 042
  3. CLOFARABINE [Suspect]
     Active Substance: CLOFARABINE
     Indication: CHEMOTHERAPY
     Route: 042
  4. MELPHALAN [Suspect]
     Active Substance: MELPHALAN
     Indication: BONE MARROW CONDITIONING REGIMEN
     Dosage: 110 MG/M2 ON 1 DAY
     Route: 042
  5. CYCLOPHOSPHAMID TROCKENSUBSTANZ 2 G BAXTER ONCOLOGY [Suspect]
     Active Substance: CYCLOPHOSPHAMIDE
     Indication: BONE MARROW CONDITIONING REGIMEN
     Dosage: ON 2 DAYS
     Route: 042

REACTIONS (1)
  - Death [Fatal]
